FAERS Safety Report 16135230 (Version 1)
Quarter: 2019Q1

REPORT INFORMATION
  Report Type: Spontaneous
  Country: US (occurrence: US)
  Receive Date: 20190329
  Receipt Date: 20190329
  Transmission Date: 20190418
  Serious: No
  Sender: FDA-Public Use
  Company Number: US-SA-2019SA080919

PATIENT
  Sex: Female

DRUGS (1)
  1. AUBAGIO [Suspect]
     Active Substance: TERIFLUNOMIDE
     Dosage: UNK

REACTIONS (6)
  - Gait disturbance [Unknown]
  - Unevaluable event [Unknown]
  - Rash macular [Unknown]
  - Muscle spasms [Unknown]
  - Hypersensitivity [Unknown]
  - White blood cell count decreased [Unknown]
